FAERS Safety Report 21928970 (Version 1)
Quarter: 2023Q1

REPORT INFORMATION
  Report Type: Report from Study
  Country: US (occurrence: US)
  Receive Date: 20230131
  Receipt Date: 20230131
  Transmission Date: 20230417
  Serious: Yes (Other)
  Sender: FDA-Public Use
  Company Number: US-ABBVIE-4288650

PATIENT
  Age: 73 Year
  Sex: Male

DRUGS (1)
  1. LUPRON [Suspect]
     Active Substance: LEUPROLIDE ACETATE
     Indication: Product used for unknown indication
     Dates: start: 202209

REACTIONS (3)
  - Fatigue [Unknown]
  - Chemotherapy [Unknown]
  - Skin mass [Recovering/Resolving]

NARRATIVE: CASE EVENT DATE: 20220101
